FAERS Safety Report 26088276 (Version 1)
Quarter: 2025Q4

REPORT INFORMATION
  Report Type: Spontaneous
  Country: EU (occurrence: EU)
  Receive Date: 20251125
  Receipt Date: 20251125
  Transmission Date: 20260118
  Serious: Yes (Hospitalization)
  Sender: MYLAN
  Company Number: None

PATIENT
  Age: 44 Year
  Sex: Male
  Weight: 45 kg

DRUGS (12)
  1. PAROXETINE [Suspect]
     Active Substance: PAROXETINE
     Indication: Medication error
     Dosage: 30 MILLIGRAM, 1 TOTAL (30 MG TOTAL)
     Dates: start: 20250927, end: 20250927
  2. PAROXETINE [Suspect]
     Active Substance: PAROXETINE
     Dosage: 30 MILLIGRAM, 1 TOTAL (30 MG TOTAL)
     Route: 048
     Dates: start: 20250927, end: 20250927
  3. PAROXETINE [Suspect]
     Active Substance: PAROXETINE
     Dosage: 30 MILLIGRAM, 1 TOTAL (30 MG TOTAL)
     Route: 048
     Dates: start: 20250927, end: 20250927
  4. PAROXETINE [Suspect]
     Active Substance: PAROXETINE
     Dosage: 30 MILLIGRAM, 1 TOTAL (30 MG TOTAL)
     Dates: start: 20250927, end: 20250927
  5. LOXAPINE [Suspect]
     Active Substance: LOXAPINE
     Indication: Medication error
     Dosage: 100 MILLIGRAM, 1 TOTAL (1 DOSAGE FORM 1 TOTAL (100 MG TOTAL))
     Dates: start: 20250927, end: 20250927
  6. LOXAPINE [Suspect]
     Active Substance: LOXAPINE
     Dosage: 100 MILLIGRAM, 1 TOTAL (1 DOSAGE FORM 1 TOTAL (100 MG TOTAL))
     Route: 048
     Dates: start: 20250927, end: 20250927
  7. LOXAPINE [Suspect]
     Active Substance: LOXAPINE
     Dosage: 100 MILLIGRAM, 1 TOTAL (1 DOSAGE FORM 1 TOTAL (100 MG TOTAL))
     Route: 048
     Dates: start: 20250927, end: 20250927
  8. LOXAPINE [Suspect]
     Active Substance: LOXAPINE
     Dosage: 100 MILLIGRAM, 1 TOTAL (1 DOSAGE FORM 1 TOTAL (100 MG TOTAL))
     Dates: start: 20250927, end: 20250927
  9. OLANZAPINE [Suspect]
     Active Substance: OLANZAPINE
     Indication: Medication error
     Dosage: 20 MILLIGRAM, 1 TOTAL (20 MG TOTAL)
     Dates: start: 20250927, end: 20250927
  10. OLANZAPINE [Suspect]
     Active Substance: OLANZAPINE
     Dosage: 20 MILLIGRAM, 1 TOTAL (20 MG TOTAL)
     Route: 048
     Dates: start: 20250927, end: 20250927
  11. OLANZAPINE [Suspect]
     Active Substance: OLANZAPINE
     Dosage: 20 MILLIGRAM, 1 TOTAL (20 MG TOTAL)
     Route: 048
     Dates: start: 20250927, end: 20250927
  12. OLANZAPINE [Suspect]
     Active Substance: OLANZAPINE
     Dosage: 20 MILLIGRAM, 1 TOTAL (20 MG TOTAL)
     Dates: start: 20250927, end: 20250927

REACTIONS (2)
  - Somnolence [Recovered/Resolved]
  - Wrong patient received product [Recovered/Resolved]

NARRATIVE: CASE EVENT DATE: 20250927
